FAERS Safety Report 7339810-X (Version None)
Quarter: 2011Q1

REPORT INFORMATION
  Report Type: 
  Country: None (occurrence: None)
  Receive Date: 20110309
  Receipt Date: 20100823
  Transmission Date: 20110831
  Serious: Yes (Other)
  Sender: FDA-Public Use
  Company Number: US-BAYER-200934823NA

PATIENT
  Sex: Female

DRUGS (8)
  1. EXCEDRIN (MIGRAINE) [Concomitant]
  2. MAALOX [Concomitant]
     Indication: DYSPEPSIA
  3. SULFONAMIDES AND TRIMETHOPRIM [Concomitant]
  4. MAGNESIUM SULFATE [Concomitant]
     Route: 042
  5. LORTAB [Concomitant]
     Dosage: 5/325
  6. ATROPIN [Concomitant]
     Dosage: 1MG/ 10MG
     Route: 042
  7. HYDROCODONE BITARTRATE AND ACETAMINOPHEN [Concomitant]
  8. YASMIN [Suspect]
     Indication: CONTRACEPTION
     Dosage: 1 TAB/DAY
     Route: 048
     Dates: start: 20060411, end: 20070917

REACTIONS (6)
  - PAIN IN EXTREMITY [None]
  - PRESYNCOPE [None]
  - GROIN PAIN [None]
  - DEEP VEIN THROMBOSIS [None]
  - PAIN [None]
  - ABDOMINAL TENDERNESS [None]
